FAERS Safety Report 4563216-X (Version None)
Quarter: 2005Q1

REPORT INFORMATION
  Report Type: 
  Country: None (occurrence: None)
  Receive Date: 20050128
  Receipt Date: 20050118
  Transmission Date: 20050727
  Serious: Yes (Death, Life-Threatening, Hospitalization)
  Sender: FDA-Public Use
  Company Number: CH-JNJFOC-20050104425

PATIENT
  Age: 59 Year
  Sex: Male

DRUGS (7)
  1. REMICADE [Suspect]
     Indication: RHEUMATOID ARTHRITIS
     Route: 042
  2. METHOTREXATE [Suspect]
     Indication: RHEUMATOID ARTHRITIS
     Route: 030
  3. PREDNISOLONE [Concomitant]
     Route: 049
  4. SALAZOPYRIN [Concomitant]
     Route: 049
  5. VIOXX [Concomitant]
     Route: 049
  6. FOSAMAX [Concomitant]
  7. FOLVITE [Concomitant]
     Route: 049

REACTIONS (3)
  - ACUTE RESPIRATORY DISTRESS SYNDROME [None]
  - INTERSTITIAL LUNG DISEASE [None]
  - PSEUDOMONAS INFECTION [None]
